FAERS Safety Report 7193699-0 (Version None)
Quarter: 2010Q4

REPORT INFORMATION
  Report Type: 
  Country: None (occurrence: None)
  Receive Date: 20101124
  Receipt Date: 20100916
  Transmission Date: 20110411
  Serious: No
  Sender: FDA-Public Use
  Company Number: 018944

PATIENT
  Sex: Female
  Weight: 99.8 kg

DRUGS (4)
  1. LACOSAMIDE [Suspect]
     Indication: CONVULSION
     Dosage: (100 MG BID ORAL)
     Route: 048
     Dates: start: 20100101
  2. LEVETIRACETAM [Suspect]
     Indication: CONVULSION
     Dosage: (750 MG QID, 750 MG 2 TABS MORNING, 750 MG 2 TABS EVENING ORAL)
     Route: 048
     Dates: start: 20100101
  3. XANAX [Concomitant]
  4. AMBIEN [Concomitant]

REACTIONS (4)
  - EYE PRURITUS [None]
  - JOINT SWELLING [None]
  - OEDEMA PERIPHERAL [None]
  - VISUAL IMPAIRMENT [None]
